FAERS Safety Report 9198657 (Version 3)
Quarter: 2013Q3

REPORT INFORMATION
  Report Type: Spontaneous
  Country: US (occurrence: US)
  Receive Date: 20130329
  Receipt Date: 20130923
  Transmission Date: 20140515
  Serious: Yes (Hospitalization)
  Sender: FDA-Public Use
  Company Number: US-JNJFOC-20130312148

PATIENT
  Age: 83 Year
  Sex: Female
  Weight: 60.45 kg

DRUGS (11)
  1. XARELTO [Suspect]
     Indication: CEREBROVASCULAR ACCIDENT PROPHYLAXIS
     Dosage: 1.5 TABLET DAILY, STARTED IN JUN
     Route: 048
     Dates: start: 201206, end: 201208
  2. XARELTO [Suspect]
     Indication: ATRIAL FIBRILLATION
     Dosage: 1.5 TABLET DAILY, STARTED IN JUN
     Route: 048
     Dates: start: 201206, end: 201208
  3. ASA [Suspect]
     Indication: PRODUCT USED FOR UNKNOWN INDICATION
     Route: 065
  4. SIMVASTATIN [Concomitant]
     Route: 065
  5. TYLENOL [Concomitant]
     Route: 065
  6. ALTACE [Concomitant]
     Route: 065
  7. VIT C [Concomitant]
     Route: 065
  8. TOPROL XL [Concomitant]
     Route: 065
  9. LASIX [Concomitant]
     Route: 065
  10. TIKOSYN [Concomitant]
     Route: 065
  11. ALPRAZOLAM [Concomitant]
     Route: 065

REACTIONS (5)
  - Anaemia [Recovering/Resolving]
  - Haemoglobin decreased [Unknown]
  - Lower gastrointestinal haemorrhage [Recovering/Resolving]
  - Melaena [Recovering/Resolving]
  - Fatigue [Recovering/Resolving]
